FAERS Safety Report 5578814-4 (Version None)
Quarter: 2008Q1

REPORT INFORMATION
  Report Type: 
  Country: None (occurrence: None)
  Receive Date: 20080102
  Receipt Date: 20071222
  Transmission Date: 20080703
  Serious: Yes (Hospitalization, Other)
  Sender: FDA-Public Use
  Company Number: US-JNJFOC-20071206084

PATIENT
  Sex: Male

DRUGS (1)
  1. DURAGESIC-100 [Suspect]
     Indication: PAIN
     Route: 062

REACTIONS (4)
  - APPLICATION SITE EXCORIATION [None]
  - BLOOD SODIUM DECREASED [None]
  - EPILEPSY [None]
  - INAPPROPRIATE SCHEDULE OF DRUG ADMINISTRATION [None]
